FAERS Safety Report 8477612-1 (Version None)
Quarter: 2012Q2

REPORT INFORMATION
  Report Type: 
  Country: None (occurrence: None)
  Receive Date: 20120629
  Receipt Date: 20120614
  Transmission Date: 20120825
  Serious: No
  Sender: FDA-Public Use
  Company Number: US-ASTRAZENECA-2012SE40367

PATIENT
  Age: 57 Year
  Sex: Female

DRUGS (2)
  1. TOPROL-XL [Suspect]
     Route: 048
  2. TOPROL-XL [Suspect]
     Dosage: GENERIC
     Route: 048

REACTIONS (4)
  - OFF LABEL USE [None]
  - BLOOD PRESSURE INCREASED [None]
  - HEADACHE [None]
  - PALPITATIONS [None]
